FAERS Safety Report 21526742 (Version 3)
Quarter: 2022Q4

REPORT INFORMATION
  Report Type: Report from Study
  Country: AU (occurrence: AU)
  Receive Date: 20221031
  Receipt Date: 20221212
  Transmission Date: 20230112
  Serious: Yes (Other)
  Sender: FDA-Public Use
  Company Number: AU-BRISTOL-MYERS SQUIBB COMPANY-2022-126924

PATIENT
  Age: 72 Year
  Sex: Female
  Weight: 72.2 kg

DRUGS (30)
  1. LENALIDOMIDE [Suspect]
     Active Substance: LENALIDOMIDE
     Indication: Plasma cell myeloma
     Route: 048
     Dates: start: 20220411, end: 20220911
  2. TECLISTAMAB [Suspect]
     Active Substance: TECLISTAMAB
     Indication: Plasma cell myeloma
     Route: 058
     Dates: start: 20220314, end: 20220905
  3. ASPIRIN [Concomitant]
     Active Substance: ASPIRIN
     Indication: Thrombosis prophylaxis
     Route: 048
     Dates: start: 20170101
  4. VALACYCLOVIR HYDROCHLORIDE [Concomitant]
     Active Substance: VALACYCLOVIR HYDROCHLORIDE
     Indication: Antiviral prophylaxis
     Route: 048
     Dates: start: 20170401
  5. MAGNESIUM POWDER [MAGNESIUM ASPARTATE;MAGNESIUM CHELATE;MAGNESIUM CITR [Concomitant]
     Indication: Muscle spasms
     Dosage: AS REQUIRED
     Route: 048
     Dates: start: 20201001
  6. MACRODANTIN [Concomitant]
     Active Substance: NITROFURANTOIN
     Indication: Urinary tract infection
     Route: 048
     Dates: start: 20201001
  7. FILGRASTIM [Concomitant]
     Active Substance: FILGRASTIM
     Indication: Neutropenia
     Route: 058
     Dates: start: 20210101
  8. GRANULOCYTE COLONY-STIMULATING FACTOR NOS [Concomitant]
     Active Substance: GRANULOCYTE COLONY-STIMULATING FACTOR NOS
     Indication: Neutropenia
     Dosage: AS REQUIRED
     Route: 058
     Dates: start: 20210101
  9. HIZENTRA [Concomitant]
     Active Substance: HUMAN IMMUNOGLOBULIN G
     Indication: Immunosuppressant drug therapy
     Dosage: 35 ML, 1 IN 1 WEEK
     Route: 058
     Dates: start: 20210901
  10. POLYETHYLENE GLYCOL, UNSPECIFIED [Concomitant]
     Active Substance: POLYETHYLENE GLYCOL, UNSPECIFIED
     Indication: Constipation
     Route: 048
     Dates: start: 20211201
  11. HYDROCORTISONE [Concomitant]
     Active Substance: HYDROCORTISONE
     Indication: Erythema
     Dosage: 1 AS REQUIRED
     Route: 061
     Dates: start: 20220405
  12. HYDROCORTISONE [Concomitant]
     Active Substance: HYDROCORTISONE
     Indication: Inflammation
  13. HYDROCORTISONE [Concomitant]
     Active Substance: HYDROCORTISONE
     Indication: Pain
  14. HYDROCORTISONE [Concomitant]
     Active Substance: HYDROCORTISONE
     Indication: Injection site reaction
  15. LORATADINE [Concomitant]
     Active Substance: LORATADINE
     Indication: Immunosuppressant drug therapy
     Route: 048
     Dates: start: 20220410
  16. TEMAZEPAM [Concomitant]
     Active Substance: TEMAZEPAM
     Indication: Insomnia
     Dosage: AS REQUIRED
     Route: 048
     Dates: start: 20220509
  17. BUDESONIDE [Concomitant]
     Active Substance: BUDESONIDE
     Indication: Rhinovirus infection
     Route: 055
     Dates: start: 20220616
  18. ZYRTEC [Concomitant]
     Active Substance: CETIRIZINE HYDROCHLORIDE
     Indication: Premedication
     Dosage: AS REQUIRED
     Route: 048
     Dates: start: 20220725
  19. ICHTHAMMOL [Concomitant]
     Active Substance: ICHTHAMMOL
     Indication: Dermal cyst
     Dosage: 1 IN 1 DAY
     Route: 061
     Dates: start: 20220803
  20. BACTRIM DS [Concomitant]
     Active Substance: SULFAMETHOXAZOLE\TRIMETHOPRIM
     Indication: Antibiotic prophylaxis
     Route: 048
     Dates: start: 20220808
  21. NIZATIDINE [Concomitant]
     Active Substance: NIZATIDINE
     Indication: Erythema
     Dosage: 150 MG, 1 IN 2 WEEK
     Route: 048
     Dates: start: 20220822
  22. NIZATIDINE [Concomitant]
     Active Substance: NIZATIDINE
     Indication: Inflammation
  23. NIZATIDINE [Concomitant]
     Active Substance: NIZATIDINE
     Indication: Pain
  24. NIZATIDINE [Concomitant]
     Active Substance: NIZATIDINE
     Indication: Injection site reaction
  25. STRATAXRT [Concomitant]
     Indication: Erythema
     Dosage: 1 OTHER
     Route: 061
     Dates: start: 20220822
  26. STRATAXRT [Concomitant]
     Indication: Inflammation
  27. STRATAXRT [Concomitant]
     Indication: Pain
  28. STRATAXRT [Concomitant]
     Indication: Injection site reaction
  29. ONDANSETRON [Concomitant]
     Active Substance: ONDANSETRON
     Indication: Nausea
     Dosage: AS REQUIRED
     Route: 048
     Dates: start: 20220909
  30. DEXAMETHASONE [Concomitant]
     Active Substance: DEXAMETHASONE
     Indication: Drug withdrawal syndrome
     Route: 048
     Dates: start: 20220923

REACTIONS (2)
  - Metastatic malignant melanoma [Not Recovered/Not Resolved]
  - Skin cancer [Not Recovered/Not Resolved]

NARRATIVE: CASE EVENT DATE: 20221012
